FAERS Safety Report 6823035-8 (Version None)
Quarter: 2010Q3

REPORT INFORMATION
  Report Type: 
  Country: None (occurrence: None)
  Receive Date: 20100708
  Receipt Date: 20100630
  Transmission Date: 20110219
  Serious: Yes (Other)
  Sender: FDA-Public Use
  Company Number: B0652765A

PATIENT
  Sex: Male

DRUGS (6)
  1. LAMICTAL [Suspect]
     Indication: EPILEPSY
     Dosage: 25MG TWICE PER DAY
     Route: 048
     Dates: start: 20100209, end: 20100309
  2. DEPAKENE [Concomitant]
     Indication: EPILEPSY
     Dosage: 400MG PER DAY
     Route: 048
     Dates: start: 20100209
  3. PHENYTOIN SODIUM [Concomitant]
     Indication: LIVER DISORDER
     Route: 065
     Dates: start: 20090701
  4. TEGRETOL [Concomitant]
     Indication: LIVER DISORDER
     Route: 048
     Dates: start: 20091101
  5. MYSTAN [Concomitant]
     Indication: LIVER DISORDER
     Route: 048
     Dates: start: 20100101
  6. EXCEGRAN [Concomitant]
     Indication: LIVER DISORDER
     Route: 048
     Dates: start: 20100101

REACTIONS (5)
  - DRUG RASH WITH EOSINOPHILIA AND SYSTEMIC SYMPTOMS [None]
  - GENERALISED ERYTHEMA [None]
  - PYREXIA [None]
  - RASH [None]
  - SKIN EXFOLIATION [None]
